FAERS Safety Report 4508957-5 (Version None)
Quarter: 2004Q4

REPORT INFORMATION
  Report Type: 
  Country: None (occurrence: None)
  Receive Date: 20041122
  Receipt Date: 20041122
  Transmission Date: 20050328
  Serious: Yes (Other)
  Sender: FDA-Public Use
  Company Number: None

PATIENT
  Age: 74 Year
  Sex: Female
  Weight: 52.6173 kg

DRUGS (2)
  1. TAXOL [Suspect]
     Indication: LUNG ADENOCARCINOMA
     Dosage: 60 MG WEEKLY IV
     Route: 042
     Dates: start: 20041119
  2. RADIATION TREATMENTS [Concomitant]

REACTIONS (2)
  - DIZZINESS [None]
  - DYSPNOEA [None]
